FAERS Safety Report 7430955-2 (Version None)
Quarter: 2011Q2

REPORT INFORMATION
  Report Type: 
  Country: None (occurrence: None)
  Receive Date: 20110421
  Receipt Date: 20110412
  Transmission Date: 20111010
  Serious: Yes (Other)
  Sender: FDA-Public Use
  Company Number: PHHY2011TW31787

PATIENT
  Age: 44 Year
  Sex: Female

DRUGS (2)
  1. DOCETAXEL [Suspect]
  2. EPIRUBICIN [Suspect]
     Indication: BREAST CANCER

REACTIONS (7)
  - METASTASES TO LIVER [None]
  - HEPATIC CIRRHOSIS [None]
  - ASCITES [None]
  - JAUNDICE [None]
  - ASTHENIA [None]
  - NODULAR REGENERATIVE HYPERPLASIA [None]
  - LIVER FUNCTION TEST ABNORMAL [None]
